FAERS Safety Report 8599245-9 (Version None)
Quarter: 2012Q3

REPORT INFORMATION
  Report Type: 
  Country: None (occurrence: None)
  Receive Date: 20120816
  Receipt Date: 20120522
  Transmission Date: 20120928
  Serious: No
  Sender: FDA-Public Use
  Company Number: US-AMGEN-USASP2012028303

PATIENT
  Sex: Female
  Weight: 15.6 kg

DRUGS (5)
  1. DACTINOMYCIN [Concomitant]
     Dosage: 0.8 MG, Q3WK
     Route: 042
     Dates: start: 20120327, end: 20120418
  2. NEUPOGEN [Suspect]
     Indication: CHEMOTHERAPY
     Dosage: 90 MUG, QD
     Route: 058
     Dates: start: 20120329, end: 20120409
  3. VINCRISTINE [Concomitant]
     Dosage: 1 MG, QWK
     Route: 042
     Dates: start: 20120327, end: 20120515
  4. NEUPOGEN [Suspect]
     Dosage: 90 MUG, QD
     Route: 058
     Dates: start: 20120419, end: 20120430
  5. CYCLOPHOSPHAMIDE [Concomitant]
     Dosage: 52 MG, Q3WK
     Route: 042
     Dates: start: 20120327, end: 20120418

REACTIONS (1)
  - INJECTION SITE PAIN [None]
